FAERS Safety Report 11886155 (Version 1)
Quarter: 2016Q1

REPORT INFORMATION
  Report Type: Spontaneous
  Country: US (occurrence: US)
  Receive Date: 20160104
  Receipt Date: 20160104
  Transmission Date: 20160526
  Serious: Yes (Death)
  Sender: FDA-Public Use
  Company Number: US-PFIZER INC-2015462467

PATIENT
  Age: 29 Year
  Sex: Male
  Weight: 93 kg

DRUGS (1)
  1. XALKORI [Suspect]
     Active Substance: CRIZOTINIB
     Indication: LUNG CARCINOMA CELL TYPE UNSPECIFIED STAGE IV
     Dosage: UNK
     Dates: start: 201508

REACTIONS (2)
  - Lung carcinoma cell type unspecified stage IV [Fatal]
  - Disease progression [Fatal]
